FAERS Safety Report 13159398 (Version 1)
Quarter: 2017Q1

REPORT INFORMATION
  Report Type: Spontaneous
  Country: US (occurrence: US)
  Receive Date: 20170127
  Receipt Date: 20170127
  Transmission Date: 20170428
  Serious: Yes (Other)
  Sender: FDA-Public Use
  Company Number: US-PFIZER INC-2017031143

PATIENT
  Age: 11 Year
  Sex: Male
  Weight: 44 kg

DRUGS (3)
  1. CHILDRENS ADVIL [Suspect]
     Active Substance: IBUPROFEN
     Indication: PYREXIA
     Dosage: 3 DF, SINGLE, 3 TEASPOONS
     Route: 048
     Dates: start: 20170120, end: 20170120
  2. INSULIN [Concomitant]
     Active Substance: INSULIN NOS
  3. CHILDRENS ADVIL [Suspect]
     Active Substance: IBUPROFEN
     Indication: NASOPHARYNGITIS

REACTIONS (2)
  - Blood glucose increased [Unknown]
  - Product label issue [Unknown]

NARRATIVE: CASE EVENT DATE: 20170120
